FAERS Safety Report 5663976-0 (Version None)
Quarter: 2008Q1

REPORT INFORMATION
  Report Type: 
  Country: None (occurrence: None)
  Receive Date: 20080314
  Receipt Date: 20080303
  Transmission Date: 20080703
  Serious: Yes (Other)
  Sender: FDA-Public Use
  Company Number: GB-TEVA-168347ISR

PATIENT
  Age: 42 Year
  Sex: Female

DRUGS (2)
  1. TAMOXIFEN [Suspect]
     Route: 048
  2. VARENICLINE TARTRATE (CHAMPIX) [Suspect]
     Indication: SMOKING CESSATION THERAPY
     Route: 048
     Dates: start: 20071012

REACTIONS (2)
  - DRUG INTERACTION [None]
  - VOMITING [None]
